FAERS Safety Report 7006397-0 (Version None)
Quarter: 2010Q3

REPORT INFORMATION
  Report Type: 
  Country: None (occurrence: None)
  Receive Date: 20100909
  Receipt Date: 20100826
  Transmission Date: 20110219
  Serious: Yes (Other)
  Sender: FDA-Public Use
  Company Number: MOZO-1000244

PATIENT
  Age: 55 Year
  Sex: Male
  Weight: 64 kg

DRUGS (7)
  1. MOZOBIL [Suspect]
     Indication: HAEMATOPOIETIC STEM CELL MOBILISATION
     Dosage: 0.82 ML, ONCE,
     Dates: start: 20090511, end: 20090511
  2. PAMIDRONATE DISODIUM [Concomitant]
  3. MORPHINE SULFATE [Concomitant]
  4. VFEND [Concomitant]
  5. TRIMETHOPRIM-SULFAMETHOXAZOLE [Concomitant]
  6. OMEPRAZOL (OMEPRAZOLE MAGNESIUM) [Concomitant]
  7. MELPHALAN HYDROCHLORIDE [Concomitant]

REACTIONS (5)
  - DISEASE PROGRESSION [None]
  - HAEMOGLOBIN DECREASED [None]
  - MULTIPLE MYELOMA [None]
  - NEUTROPHIL COUNT DECREASED [None]
  - TRANSPLANT FAILURE [None]
